FAERS Safety Report 21610421 (Version 2)
Quarter: 2023Q1

REPORT INFORMATION
  Report Type: Spontaneous
  Country: US (occurrence: US)
  Receive Date: 20221117
  Receipt Date: 20230214
  Transmission Date: 20230418
  Serious: Yes (Death)
  Sender: FDA-Public Use
  Company Number: US-MannKind Corporation-2022MK000394

PATIENT
  Age: 34 Year
  Sex: Female
  Weight: 89.892 kg

DRUGS (1)
  1. AFREZZA [Suspect]
     Active Substance: INSULIN HUMAN
     Indication: Type 1 diabetes mellitus
     Dates: start: 202007, end: 20210112

REACTIONS (1)
  - Death [Fatal]

NARRATIVE: CASE EVENT DATE: 20210112
